FAERS Safety Report 6588848-9 (Version None)
Quarter: 2010Q1

REPORT INFORMATION
  Report Type: 
  Country: None (occurrence: None)
  Receive Date: 20100218
  Receipt Date: 20100217
  Transmission Date: 20100710
  Serious: Yes (Hospitalization)
  Sender: FDA-Public Use
  Company Number: A0844816A

PATIENT
  Age: 64 Year
  Sex: Male

DRUGS (1)
  1. AVANDIA [Suspect]
     Indication: DIABETES MELLITUS
     Dosage: 8MG UNKNOWN
     Route: 048
     Dates: start: 19990101, end: 20070101

REACTIONS (4)
  - AMNESIA [None]
  - BALANCE DISORDER [None]
  - MYOCARDIAL INFARCTION [None]
  - RENAL FAILURE [None]
